FAERS Safety Report 5035097-1 (Version None)
Quarter: 2006Q2

REPORT INFORMATION
  Report Type: 
  Country: None (occurrence: None)
  Receive Date: 20060622
  Receipt Date: 20060622
  Transmission Date: 20061013
  Serious: Yes (Other)
  Sender: FDA-Public Use
  Company Number: None

PATIENT
  Age: 89 Year
  Sex: Female
  Weight: 54.4316 kg

DRUGS (2)
  1. MOBIC [Suspect]
     Indication: OSTEOARTHRITIS
     Dosage: 7.5 MG DAILY PO
     Route: 048
     Dates: start: 20060416, end: 20060417
  2. MOBIC [Suspect]
     Indication: PAIN
     Dosage: 7.5 MG DAILY PO
     Route: 048
     Dates: start: 20060416, end: 20060417

REACTIONS (5)
  - ERYTHEMA [None]
  - EYE SWELLING [None]
  - FACE OEDEMA [None]
  - PRURITUS [None]
  - RASH [None]
